FAERS Safety Report 7559945-6 (Version None)
Quarter: 2011Q2

REPORT INFORMATION
  Report Type: 
  Country: None (occurrence: None)
  Receive Date: 20110621
  Receipt Date: 20110607
  Transmission Date: 20111010
  Serious: Yes (Hospitalization, Other)
  Sender: FDA-Public Use
  Company Number: PHHY2011IN52092

PATIENT
  Sex: Female
  Weight: 65 kg

DRUGS (1)
  1. FEMARA [Suspect]
     Indication: BREAST CANCER RECURRENT
     Dosage: 2.5 MG, QD
     Dates: start: 20100506

REACTIONS (11)
  - BLOOD PARATHYROID HORMONE INCREASED [None]
  - INTERVERTEBRAL DISC DEGENERATION [None]
  - OSTEOARTHRITIS [None]
  - LYMPHOCYTE COUNT DECREASED [None]
  - BREAST CANCER RECURRENT [None]
  - OSTEOPENIA [None]
  - POST PROCEDURAL COMPLICATION [None]
  - BIOPSY CHEST WALL ABNORMAL [None]
  - MONOCYTE COUNT DECREASED [None]
  - NEUTROPHIL COUNT INCREASED [None]
  - MUSCLE STRAIN [None]
